FAERS Safety Report 25820556 (Version 5)
Quarter: 2025Q4

REPORT INFORMATION
  Report Type: Spontaneous
  Country: JP (occurrence: JP)
  Receive Date: 20250919
  Receipt Date: 20251212
  Transmission Date: 20260117
  Serious: Yes (Hospitalization, Disabling)
  Sender: RECORDATI
  Company Number: JP-ORPHANEU-2025006581

PATIENT
  Age: 52 Year
  Sex: Female
  Weight: 45.1 kg

DRUGS (17)
  1. SIGNIFOR LAR [Suspect]
     Active Substance: PASIREOTIDE PAMOATE
     Indication: Pituitary-dependent Cushing^s syndrome
     Dosage: 10 MG, QM (MONTHLY)
     Route: 030
     Dates: start: 20190618
  2. SIGNIFOR LAR [Suspect]
     Active Substance: PASIREOTIDE PAMOATE
     Dosage: 10 MG EVERY 28 DAYS
     Route: 030
     Dates: start: 20200526, end: 20200818
  3. SIGNIFOR LAR [Suspect]
     Active Substance: PASIREOTIDE PAMOATE
     Dosage: 10 MG EVERY 42 DAYS
     Route: 030
     Dates: start: 20201013, end: 20201124
  4. SIGNIFOR LAR [Suspect]
     Active Substance: PASIREOTIDE PAMOATE
     Dosage: 10 MG EVERY 28 DAYS
     Route: 030
     Dates: start: 20201124, end: 20210413
  5. SIGNIFOR LAR [Suspect]
     Active Substance: PASIREOTIDE PAMOATE
     Dosage: 10 MG EVERY 30 DAYS
     Route: 030
     Dates: start: 20210413, end: 20210513
  6. SIGNIFOR LAR [Suspect]
     Active Substance: PASIREOTIDE PAMOATE
     Dosage: 10 MG EVERY 26 DAYS
     Route: 030
     Dates: start: 20210513, end: 20210608
  7. SIGNIFOR LAR [Suspect]
     Active Substance: PASIREOTIDE PAMOATE
     Dosage: 10 MG EVERY 28 DAYS
     Route: 030
     Dates: start: 20210608, end: 20210803
  8. SIGNIFOR LAR [Suspect]
     Active Substance: PASIREOTIDE PAMOATE
     Dosage: 10 MG EVERY 27 DAYS
     Route: 030
     Dates: start: 20210803, end: 20210830
  9. SIGNIFOR LAR [Suspect]
     Active Substance: PASIREOTIDE PAMOATE
     Dosage: 10 MG EVERY 29 DAYS
     Route: 030
     Dates: start: 20210830, end: 20210928
  10. SIGNIFOR LAR [Suspect]
     Active Substance: PASIREOTIDE PAMOATE
     Dosage: 10 MG EVERY 28 DAYS
     Route: 030
     Dates: start: 20210928, end: 20211026
  11. SIGNIFOR LAR [Suspect]
     Active Substance: PASIREOTIDE PAMOATE
     Dosage: 10 MG EVERY 35 DAYS
     Route: 030
     Dates: start: 20211026, end: 20211130
  12. SIGNIFOR LAR [Suspect]
     Active Substance: PASIREOTIDE PAMOATE
     Dosage: 10 MG EVERY 28 DAYS
     Route: 030
     Dates: start: 20211130, end: 20220125
  13. SIGNIFOR LAR [Suspect]
     Active Substance: PASIREOTIDE PAMOATE
     Dosage: 10 MG EVERY 30 DAYS
     Route: 030
     Dates: start: 20220125, end: 20220224
  14. SIGNIFOR LAR [Suspect]
     Active Substance: PASIREOTIDE PAMOATE
     Dosage: 10 MG EVERY 26 DAYS
     Route: 030
     Dates: start: 20220224, end: 20220322
  15. SIGNIFOR LAR [Suspect]
     Active Substance: PASIREOTIDE PAMOATE
     Dosage: 10 MG
     Route: 030
     Dates: start: 20220322
  16. JANUVIA [Concomitant]
     Active Substance: SITAGLIPTIN PHOSPHATE
     Indication: Disease complication
     Dosage: 50 MG DAILY
     Route: 048
     Dates: start: 20190910
  17. MIGLITOL [Concomitant]
     Active Substance: MIGLITOL
     Indication: Disease complication
     Dosage: 150 MG DAILY
     Route: 048
     Dates: start: 20200623

REACTIONS (5)
  - Cerebral haemorrhage [Recovered/Resolved with Sequelae]
  - Hemiplegia [Recovering/Resolving]
  - Loss of consciousness [Recovering/Resolving]
  - Aphasia [Unknown]
  - Inappropriate schedule of product administration [Recovered/Resolved]

NARRATIVE: CASE EVENT DATE: 20200914
